FAERS Safety Report 18351242 (Version 3)
Quarter: 2020Q4

REPORT INFORMATION
  Report Type: Spontaneous
  Country: AT (occurrence: AT)
  Receive Date: 20201006
  Receipt Date: 20201109
  Transmission Date: 20210114
  Serious: No
  Sender: FDA-Public Use
  Company Number: AT-JNJFOC-20200928822

PATIENT
  Sex: Male

DRUGS (12)
  1. DUROGESIC [Suspect]
     Active Substance: FENTANYL
  2. DUROGESIC [Suspect]
     Active Substance: FENTANYL
  3. DUROGESIC [Suspect]
     Active Substance: FENTANYL
  4. DUROGESIC [Suspect]
     Active Substance: FENTANYL
  5. DUROGESIC [Suspect]
     Active Substance: FENTANYL
  6. DUROGESIC [Suspect]
     Active Substance: FENTANYL
     Indication: PRODUCT USED FOR UNKNOWN INDICATION
     Dosage: STRENGTH: 50.00 MCG/HR
     Route: 062
  7. DUROGESIC [Suspect]
     Active Substance: FENTANYL
  8. DUROGESIC [Suspect]
     Active Substance: FENTANYL
     Route: 062
  9. DUROGESIC [Suspect]
     Active Substance: FENTANYL
     Indication: PRODUCT USED FOR UNKNOWN INDICATION
     Dosage: STRENGTH: 50.00 MCG/HR
     Route: 062
  10. DUROGESIC [Suspect]
     Active Substance: FENTANYL
  11. DUROGESIC [Suspect]
     Active Substance: FENTANYL
  12. DUROGESIC [Suspect]
     Active Substance: FENTANYL

REACTIONS (3)
  - Pain [Unknown]
  - Product packaging issue [Unknown]
  - Product adhesion issue [Unknown]
